FAERS Safety Report 4389368-2 (Version None)
Quarter: 2004Q2

REPORT INFORMATION
  Report Type: 
  Country: None (occurrence: None)
  Receive Date: 20040630
  Receipt Date: 20040617
  Transmission Date: 20050107
  Serious: Yes (Hospitalization)
  Sender: FDA-Public Use
  Company Number: 2004220155GB

PATIENT
  Age: 67 Year
  Sex: Female
  Weight: 39 kg

DRUGS (7)
  1. DOXORUBICIN HCL [Suspect]
     Indication: SPINDLE CELL SARCOMA
     Dosage: 56 MG, QD, IV
     Route: 042
     Dates: start: 20040518, end: 20040518
  2. IFOSFAMIDE [Suspect]
     Indication: SPINDLE CELL SARCOMA
     Dosage: 5600 MG, QD, IV
     Route: 042
     Dates: start: 20040518, end: 20040518
  3. MESNA [Suspect]
     Indication: SPINDLE CELL SARCOMA
     Dosage: 5000 MG,QD,IV/ 4200 MG,QD,IV
     Route: 042
     Dates: start: 20040518, end: 20040518
  4. MESNA [Suspect]
     Indication: SPINDLE CELL SARCOMA
     Dosage: 5000 MG,QD,IV/ 4200 MG,QD,IV
     Route: 042
     Dates: start: 20040519, end: 20040519
  5. SERTRALINE (SERTRALINE) [Concomitant]
  6. DICLOFENAC [Concomitant]
  7. LANSOPRAZOLE [Concomitant]

REACTIONS (3)
  - DISEASE PROGRESSION [None]
  - NEUTROPENIC SEPSIS [None]
  - PLATELET COUNT DECREASED [None]
